FAERS Safety Report 26218086 (Version 1)
Quarter: 2025Q4

REPORT INFORMATION
  Report Type: Spontaneous
  Country: US (occurrence: US)
  Receive Date: 20251231
  Receipt Date: 20251231
  Transmission Date: 20260118
  Serious: Yes (Life-Threatening, Hospitalization, Other)
  Sender: SAMSUNG BIOEPIS
  Company Number: US-SAMSUNG BIOEPIS-SB-2025-43177

PATIENT
  Sex: Female

DRUGS (4)
  1. INFLIXIMAB [Suspect]
     Active Substance: INFLIXIMAB
     Indication: Pneumonitis
     Route: 042
  2. TRASTUZUMAB [Suspect]
     Active Substance: TRASTUZUMAB
     Indication: HER2 positive breast cancer
     Dosage: TRASTUZUMAB (LOADING DOSE OF 4 MG/KG FOLLOWED?BY 2 MG/KG WEEKLY FOR 12 WEEKS), WITH A PLANNED CONTIN
  3. PACLITAXEL [Suspect]
     Active Substance: PACLITAXEL
     Indication: HER2 positive breast cancer
     Dosage: 10% DOSE REDUCTION OF PACLITAXEL
  4. PACLITAXEL [Suspect]
     Active Substance: PACLITAXEL

REACTIONS (4)
  - Pneumonitis [Recovering/Resolving]
  - Neuropathy peripheral [Unknown]
  - Off label use [Unknown]
  - Drug effective for unapproved indication [Unknown]
